FAERS Safety Report 21684462 (Version 2)
Quarter: 2023Q1

REPORT INFORMATION
  Report Type: Report from Study
  Country: CA (occurrence: CA)
  Receive Date: 20221205
  Receipt Date: 20230223
  Transmission Date: 20230417
  Serious: Yes (Death)
  Sender: FDA-Public Use
  Company Number: CA-002147023-NVSC2022CA106116

PATIENT
  Age: 89 Year
  Sex: Female

DRUGS (2)
  1. ERELZI [Suspect]
     Active Substance: ETANERCEPT-SZZS
     Indication: Rheumatoid arthritis
     Dosage: 50 MG, QW
     Route: 058
     Dates: start: 20220426
  2. METHOTREXATE [Concomitant]
     Active Substance: METHOTREXATE
     Indication: Product used for unknown indication
     Dosage: UNK, QW
     Route: 048
     Dates: start: 2002

REACTIONS (6)
  - Death [Fatal]
  - General physical health deterioration [Unknown]
  - Grip strength decreased [Unknown]
  - Gait disturbance [Unknown]
  - Impaired self-care [Unknown]
  - Dysstasia [Unknown]

NARRATIVE: CASE EVENT DATE: 20220827
